FAERS Safety Report 6091532-1 (Version None)
Quarter: 2009Q1

REPORT INFORMATION
  Report Type: 
  Country: None (occurrence: None)
  Receive Date: 20090225
  Receipt Date: 20090217
  Transmission Date: 20090719
  Serious: Yes (Hospitalization)
  Sender: FDA-Public Use
  Company Number: PHHO2008DE14908

PATIENT
  Sex: Male

DRUGS (5)
  1. CYCLOSPORINE [Suspect]
     Indication: LIVER TRANSPLANT
     Dosage: 100 MG, BID
     Route: 048
     Dates: start: 20071011
  2. NO TREATMENT RECEIVED NOMED [Suspect]
     Indication: LIVER TRANSPLANT
  3. BASILIXIMAB [Concomitant]
     Indication: LIVER TRANSPLANT
     Dosage: 1ST DOSE
     Dates: start: 20071011, end: 20071011
  4. BASILIXIMAB [Concomitant]
     Dosage: 2ND DOSE
     Dates: start: 20071015, end: 20071015
  5. CORTICOSTEROIDS [Concomitant]
     Indication: LIVER TRANSPLANT

REACTIONS (4)
  - HYPOGLYCAEMIA [None]
  - NAUSEA [None]
  - SYNCOPE [None]
  - VOMITING [None]
